FAERS Safety Report 7245976-2 (Version None)
Quarter: 2011Q1

REPORT INFORMATION
  Report Type: 
  Country: None (occurrence: None)
  Receive Date: 20110126
  Receipt Date: 20110114
  Transmission Date: 20110831
  Serious: Yes (Other)
  Sender: FDA-Public Use
  Company Number: PHHY2011BR03763

PATIENT
  Sex: Male

DRUGS (2)
  1. CRESTOR [Suspect]
     Dosage: 20 MG, UNK
  2. DIOVAN [Suspect]
     Dosage: 160 MG, UNK

REACTIONS (1)
  - INFARCTION [None]
